FAERS Safety Report 8596559-3 (Version None)
Quarter: 2012Q3

REPORT INFORMATION
  Report Type: 
  Country: None (occurrence: None)
  Receive Date: 20120815
  Receipt Date: 20120803
  Transmission Date: 20120928
  Serious: Yes (Other)
  Sender: FDA-Public Use
  Company Number: AU-BRISTOL-MYERS SQUIBB COMPANY-16843765

PATIENT
  Age: 41 Year
  Sex: Female
  Weight: 72 kg

DRUGS (8)
  1. ORENCIA [Suspect]
     Indication: RHEUMATOID ARTHRITIS
     Dosage: MID JUN,INTD ON 29JUN12
     Route: 042
     Dates: start: 20101119
  2. LASIX [Concomitant]
  3. PENICILLIN [Concomitant]
  4. METHOTREXATE [Concomitant]
  5. FOLIC ACID [Concomitant]
  6. PREDNISONE TAB [Concomitant]
  7. ENDEP [Concomitant]
  8. VOLTAREN [Concomitant]

REACTIONS (1)
  - ANEURYSM [None]
